FAERS Safety Report 13612762 (Version 1)
Quarter: 2017Q2

REPORT INFORMATION
  Report Type: Spontaneous
  Country: US (occurrence: US)
  Receive Date: 20170605
  Receipt Date: 20170605
  Transmission Date: 20170830
  Serious: No
  Sender: FDA-Public Use
  Company Number: W1-ALLERGAN-1712109US

PATIENT
  Age: 43 Year
  Sex: Female

DRUGS (3)
  1. KYBELLA [Suspect]
     Active Substance: DEOXYCHOLIC ACID
     Dosage: 4 SYRINGES, SINGLE
     Route: 058
     Dates: start: 201607, end: 201607
  2. KYBELLA [Suspect]
     Active Substance: DEOXYCHOLIC ACID
     Dosage: 4 SYRINGES, SINGLE
     Route: 058
     Dates: start: 20160827, end: 20160827
  3. KYBELLA [Suspect]
     Active Substance: DEOXYCHOLIC ACID
     Indication: FAT TISSUE INCREASED
     Dosage: 4 SYRINGES, SINGLE
     Route: 058
     Dates: start: 20161008, end: 20161008

REACTIONS (3)
  - Drug ineffective [Unknown]
  - Injection site pain [Recovered/Resolved]
  - Injection site swelling [Recovered/Resolved]
